FAERS Safety Report 15486087 (Version 2)
Quarter: 2018Q4

REPORT INFORMATION
  Report Type: Report from Study
  Country: CA (occurrence: CA)
  Receive Date: 20181011
  Receipt Date: 20181025
  Transmission Date: 20190205
  Serious: Yes (Other)
  Sender: FDA-Public Use
  Company Number: CA-REGENERON PHARMACEUTICALS, INC.-2018-39596

PATIENT

DRUGS (1)
  1. EYLEA [Suspect]
     Active Substance: AFLIBERCEPT
     Indication: RETINAL VEIN OCCLUSION
     Dosage: TOTAL EYLEA DOSE AND LAST DOSE PRIOR THE EVENT WERE NOT REPORTED

REACTIONS (2)
  - Blindness unilateral [Unknown]
  - Vitreous floaters [Unknown]
